FAERS Safety Report 9348953 (Version 1)
Quarter: 2013Q2

REPORT INFORMATION
  Report Type: Spontaneous
  Country: DK (occurrence: CH)
  Receive Date: 20130614
  Receipt Date: 20130614
  Transmission Date: 20140414
  Serious: Yes (Death)
  Sender: FDA-Public Use
  Company Number: CH-FRI-1000045928

PATIENT
  Age: 85 Year
  Sex: Male

DRUGS (6)
  1. ESCITALOPRAM [Suspect]
     Dosage: 10 MG
     Route: 048
     Dates: end: 20130416
  2. XARELTO [Suspect]
     Indication: ATRIAL FIBRILLATION
     Dosage: 20 MG
     Route: 048
     Dates: start: 201301, end: 20130416
  3. XARELTO [Suspect]
     Indication: ATRIAL FLUTTER
  4. ELTROXIN [Concomitant]
     Indication: HYPOTHYROIDISM
     Dosage: 0.1 MG
     Route: 048
  5. PANTOPRAZOL [Concomitant]
     Dosage: 40 MG
     Route: 048
     Dates: end: 20130416
  6. SYMBICORT [Concomitant]
     Dosage: 200/6
     Route: 050

REACTIONS (1)
  - Cerebral haemorrhage [Fatal]
